FAERS Safety Report 18605669 (Version 1)
Quarter: 2020Q4

REPORT INFORMATION
  Report Type: Report from Study
  Country: US (occurrence: US)
  Receive Date: 20201211
  Receipt Date: 20201211
  Transmission Date: 20210114
  Serious: Yes (Hospitalization, Other)
  Sender: FDA-Public Use
  Company Number: US-ARIAD-2016US007355

PATIENT
  Age: 71 Year
  Sex: Male

DRUGS (25)
  1. LASIX [Concomitant]
     Active Substance: FUROSEMIDE
     Indication: HYPERTENSION
     Dosage: UNK
     Route: 065
  2. CLONAZEPAM. [Concomitant]
     Active Substance: CLONAZEPAM
     Dosage: 0.5 MILLIGRAM, TID
     Route: 065
  3. CO Q 10 [UBIDECARENONE] [Concomitant]
     Dosage: 200 MILLIGRAM
     Route: 065
  4. INDAPAMIDE. [Concomitant]
     Active Substance: INDAPAMIDE
     Dosage: 2.5 MILLIGRAM
     Route: 065
  5. HYDROCODONE [Concomitant]
     Active Substance: HYDROCODONE
     Dosage: 5 MILLIGRAM
     Route: 065
  6. LEVOTHYROXINE. [Concomitant]
     Active Substance: LEVOTHYROXINE
     Dosage: 100 MICROGRAM
     Route: 065
  7. ATORVASTATIN [Concomitant]
     Active Substance: ATORVASTATIN
     Dosage: 40 MILLIGRAM
     Route: 065
  8. K-PHOS NO. 2 [Concomitant]
     Active Substance: POTASSIUM PHOSPHATE, MONOBASIC\SODIUM PHOSPHATE, MONOBASIC, ANHYDROUS
     Dosage: UNK
  9. VITAMIN D3 [Concomitant]
     Active Substance: CHOLECALCIFEROL
     Dosage: UNK UNK, QD
     Route: 065
  10. DOXAZOSIN [Concomitant]
     Active Substance: DOXAZOSIN MESYLATE
     Dosage: 4 MILLIGRAM
  11. CARDURA [Concomitant]
     Active Substance: DOXAZOSIN MESYLATE
     Dosage: 4 MILLIGRAM
     Route: 065
  12. PONATINIB [Suspect]
     Active Substance: PONATINIB
     Dosage: 30 MILLIGRAM, QD
     Route: 048
     Dates: start: 201612
  13. AMLODIPINE [Concomitant]
     Active Substance: AMLODIPINE BESYLATE
     Dosage: 10 MILLIGRAM, QD
     Route: 065
  14. MULTI MINERAL [Concomitant]
     Dosage: UNK
     Route: 065
  15. SPIRONOLACTONE. [Concomitant]
     Active Substance: SPIRONOLACTONE
     Dosage: 25 MILLIGRAM
     Route: 065
  16. VITAMIN B12 + FOLIC ACID [Concomitant]
     Active Substance: CYANOCOBALAMIN\FOLIC ACID
     Dosage: 1000 MICROGRAM
     Route: 065
  17. SYMBICORT [Concomitant]
     Active Substance: BUDESONIDE\FORMOTEROL FUMARATE DIHYDRATE
     Dosage: UNK
     Route: 065
  18. PONATINIB [Suspect]
     Active Substance: PONATINIB
     Indication: CHRONIC MYELOID LEUKAEMIA
     Dosage: 30 MILLIGRAM, QD
     Route: 048
     Dates: start: 201611
  19. VALSARTAN. [Concomitant]
     Active Substance: VALSARTAN
     Dosage: 320 MILLIGRAM
     Route: 065
  20. ELIQUIS [Concomitant]
     Active Substance: APIXABAN
     Dosage: 5 MILLIGRAM, BID
     Route: 065
  21. MULTIVITAMIN + MINERAL [Concomitant]
     Active Substance: MINERALS\VITAMINS
     Dosage: UNK
     Route: 065
  22. OSTEO-BI-FLEX [Concomitant]
     Dosage: UNK UNK, BID
     Route: 065
  23. PONATINIB [Suspect]
     Active Substance: PONATINIB
     Dosage: 30 MILLIGRAM, QD
     Route: 048
  24. ALLER TEC [Concomitant]
     Active Substance: CETIRIZINE HYDROCHLORIDE
     Dosage: 10 MILLIGRAM
     Route: 065
  25. FUROSEMIDE. [Concomitant]
     Active Substance: FUROSEMIDE
     Dosage: UNK
     Route: 065

REACTIONS (27)
  - Cardiac failure [Recovered/Resolved]
  - Heart rate increased [Unknown]
  - Asthma [Unknown]
  - Secretion discharge [Unknown]
  - Exostosis [Unknown]
  - Retinal disorder [Unknown]
  - Tremor [Unknown]
  - Gait inability [Unknown]
  - Bone disorder [Unknown]
  - Hepatic function abnormal [Not Recovered/Not Resolved]
  - Pain [Unknown]
  - Renal impairment [Not Recovered/Not Resolved]
  - Arthritis [Unknown]
  - Blood potassium decreased [Not Recovered/Not Resolved]
  - Constipation [Unknown]
  - Dyspnoea [Not Recovered/Not Resolved]
  - Abdominal distension [Not Recovered/Not Resolved]
  - Atrial fibrillation [Recovered/Resolved]
  - Pancreatitis [Recovered/Resolved]
  - Platelet count decreased [Unknown]
  - Fatigue [Unknown]
  - Chest pain [Unknown]
  - Blood phosphorus decreased [Unknown]
  - Pain of skin [Not Recovered/Not Resolved]
  - Headache [Unknown]
  - Blood pressure fluctuation [Unknown]
  - Rash [Unknown]

NARRATIVE: CASE EVENT DATE: 2018
